FAERS Safety Report 5594715-X (Version None)
Quarter: 2007Q4

REPORT INFORMATION
  Report Type: 
  Country: None (occurrence: None)
  Receive Date: 20071218
  Receipt Date: 20070126
  Transmission Date: 20080405
  Serious: Yes (Other)
  Sender: FDA-Public Use
  Company Number: 2006122882

PATIENT
  Age: 53 Year
  Sex: Male
  Weight: 117.9 kg

DRUGS (2)
  1. BEXTRA [Suspect]
     Indication: ARTHRITIS
     Dosage: 20 MG (20 MG,1 IN 1 D)
     Dates: start: 20030121, end: 20050312
  2. BEXTRA [Suspect]
     Indication: LYME DISEASE
     Dosage: 20 MG (20 MG,1 IN 1 D)
     Dates: start: 20030121, end: 20050312

REACTIONS (2)
  - ANXIETY [None]
  - MYOCARDIAL INFARCTION [None]
